FAERS Safety Report 6027144-5 (Version None)
Quarter: 2009Q1

REPORT INFORMATION
  Report Type: 
  Country: None (occurrence: None)
  Receive Date: 20090105
  Receipt Date: 20081228
  Transmission Date: 20090719
  Serious: Yes (Other)
  Sender: FDA-Public Use
  Company Number: GB-ROCHE-605596

PATIENT
  Sex: Female
  Weight: 139.7 kg

DRUGS (6)
  1. ORLISTAT [Suspect]
     Indication: OBESITY
     Route: 048
     Dates: start: 20080522, end: 20081205
  2. CARDICOR [Concomitant]
     Indication: BLOOD PRESSURE
     Route: 048
  3. AMLODIPINE [Concomitant]
     Indication: BLOOD PRESSURE
     Route: 048
  4. BENDROFLUMETHIAZIDE [Concomitant]
     Indication: BLOOD PRESSURE
     Dosage: DRUG REPORTED AS BENDROFLUMETHIAZEDE.
     Route: 048
  5. IRBESARTAN [Concomitant]
     Indication: BLOOD PRESSURE
     Route: 048
  6. EMCONCOR [Concomitant]
     Indication: BLOOD PRESSURE
     Dosage: DRUG REPORTED AS EMCOMCOR.
     Route: 048

REACTIONS (1)
  - RENAL MASS [None]
